FAERS Safety Report 8435866-1 (Version None)
Quarter: 2012Q2

REPORT INFORMATION
  Report Type: 
  Country: None (occurrence: None)
  Receive Date: 20120614
  Receipt Date: 20120601
  Transmission Date: 20120825
  Serious: Yes (Life-Threatening, Hospitalization)
  Sender: FDA-Public Use
  Company Number: US-SHIRE-ALL1-2012-02765

PATIENT
  Age: 57 Year
  Sex: Female

DRUGS (1)
  1. ADDERALL XR 10 [Suspect]
     Indication: PRODUCT USED FOR UNKNOWN INDICATION
     Dosage: 30 MG, 1X/DAY:QD
     Route: 048

REACTIONS (5)
  - ADVERSE EVENT [None]
  - RENAL FAILURE [None]
  - HAEMORRHAGE [None]
  - WEIGHT DECREASED [None]
  - DEHYDRATION [None]
